FAERS Safety Report 19521522 (Version 2)
Quarter: 2021Q3

REPORT INFORMATION
  Report Type: Spontaneous
  Country: US (occurrence: US)
  Receive Date: 20210712
  Receipt Date: 20210714
  Transmission Date: 20211014
  Serious: Yes (Other)
  Sender: FDA-Public Use
  Company Number: US-ALLERGAN-2123592US

PATIENT
  Sex: Male
  Weight: 63.49 kg

DRUGS (2)
  1. COMBIGAN [Suspect]
     Active Substance: BRIMONIDINE TARTRATE\TIMOLOL MALEATE
     Indication: EYE DISORDER
     Dosage: 4 GTT
     Route: 047
     Dates: start: 20210512, end: 20210512
  2. EYE MEDICATION [Concomitant]
     Indication: INFECTION

REACTIONS (5)
  - Eye irritation [Not Recovered/Not Resolved]
  - Off label use [Unknown]
  - Blindness unilateral [Unknown]
  - Eye pain [Not Recovered/Not Resolved]
  - Eye swelling [Recovered/Resolved]

NARRATIVE: CASE EVENT DATE: 20210512
